FAERS Safety Report 6145511-6 (Version None)
Quarter: 2009Q2

REPORT INFORMATION
  Report Type: 
  Country: None (occurrence: None)
  Receive Date: 20090406
  Receipt Date: 20090325
  Transmission Date: 20091009
  Serious: Yes (Other)
  Sender: FDA-Public Use
  Company Number: US-PFIZER INC-2008035366

PATIENT
  Sex: Male
  Weight: 132.9 kg

DRUGS (10)
  1. CHANTIX [Suspect]
     Indication: EX-TOBACCO USER
     Dates: start: 20080101, end: 20080417
  2. SEROQUEL [Concomitant]
  3. KLOR-CON [Concomitant]
  4. FUROSEMIDE [Concomitant]
  5. OXCARBAZEPINE [Concomitant]
  6. KEPPRA [Concomitant]
  7. DOXAZOSIN MESYLATE [Concomitant]
  8. DOCUSATE SODIUM [Concomitant]
  9. CYCLOBENZAPRINE [Concomitant]
  10. LIPITOR [Concomitant]

REACTIONS (2)
  - GASTROINTESTINAL DISORDER [None]
  - INTESTINAL FUNCTIONAL DISORDER [None]
